FAERS Safety Report 22540718 (Version 3)
Quarter: 2024Q1

REPORT INFORMATION
  Report Type: Spontaneous
  Country: US (occurrence: US)
  Receive Date: 20230609
  Receipt Date: 20240221
  Transmission Date: 20240410
  Serious: No
  Sender: FDA-Public Use
  Company Number: US-ELI_LILLY_AND_COMPANY-US202306004647

PATIENT
  Age: 47 Year
  Sex: Female

DRUGS (43)
  1. MOUNJARO [Suspect]
     Active Substance: TIRZEPATIDE
     Indication: Type 2 diabetes mellitus
     Dosage: 5 MG, WEEKLY (1/W)
     Route: 058
     Dates: start: 20230331
  2. MOUNJARO [Suspect]
     Active Substance: TIRZEPATIDE
     Indication: Type 2 diabetes mellitus
     Dosage: 5 MG, WEEKLY (1/W)
     Route: 058
     Dates: start: 20230331
  3. MOUNJARO [Suspect]
     Active Substance: TIRZEPATIDE
     Indication: Type 2 diabetes mellitus
     Dosage: 5 MG, WEEKLY (1/W)
     Route: 058
     Dates: start: 20230331
  4. MOUNJARO [Suspect]
     Active Substance: TIRZEPATIDE
     Indication: Type 2 diabetes mellitus
     Dosage: 5 MG, WEEKLY (1/W)
     Route: 058
     Dates: start: 20230331
  5. MOUNJARO [Suspect]
     Active Substance: TIRZEPATIDE
     Indication: Type 2 diabetes mellitus
     Dosage: 5 MG, WEEKLY (1/W)
     Route: 058
     Dates: start: 20230331
  6. MOUNJARO [Suspect]
     Active Substance: TIRZEPATIDE
     Indication: Polycystic ovarian syndrome
     Dosage: 7.5 MG, WEEKLY (1/W)
     Route: 058
  7. MOUNJARO [Suspect]
     Active Substance: TIRZEPATIDE
     Indication: Polycystic ovarian syndrome
     Dosage: 7.5 MG, WEEKLY (1/W)
     Route: 058
  8. MOUNJARO [Suspect]
     Active Substance: TIRZEPATIDE
     Indication: Polycystic ovarian syndrome
     Dosage: 7.5 MG, WEEKLY (1/W)
     Route: 058
  9. MOUNJARO [Suspect]
     Active Substance: TIRZEPATIDE
     Indication: Polycystic ovarian syndrome
     Dosage: 7.5 MG, WEEKLY (1/W)
     Route: 058
  10. MOUNJARO [Suspect]
     Active Substance: TIRZEPATIDE
     Indication: Polycystic ovarian syndrome
     Dosage: 7.5 MG, WEEKLY (1/W)
     Route: 058
  11. MOUNJARO [Suspect]
     Active Substance: TIRZEPATIDE
     Indication: Sjogren^s syndrome
     Dosage: 10 MG, WEEKLY (1/W)
     Route: 058
  12. MOUNJARO [Suspect]
     Active Substance: TIRZEPATIDE
     Indication: Sjogren^s syndrome
     Dosage: 10 MG, WEEKLY (1/W)
     Route: 058
  13. MOUNJARO [Suspect]
     Active Substance: TIRZEPATIDE
     Indication: Sjogren^s syndrome
     Dosage: 10 MG, WEEKLY (1/W)
     Route: 058
  14. MOUNJARO [Suspect]
     Active Substance: TIRZEPATIDE
     Indication: Sjogren^s syndrome
     Dosage: 10 MG, WEEKLY (1/W)
     Route: 058
  15. MOUNJARO [Suspect]
     Active Substance: TIRZEPATIDE
     Indication: Sjogren^s syndrome
     Dosage: 10 MG, WEEKLY (1/W)
     Route: 058
  16. MOUNJARO [Suspect]
     Active Substance: TIRZEPATIDE
     Indication: Blood insulin increased
     Dosage: 12.5 MG, WEEKLY (1/W)
     Route: 058
  17. MOUNJARO [Suspect]
     Active Substance: TIRZEPATIDE
     Indication: Blood insulin increased
     Dosage: 12.5 MG, WEEKLY (1/W)
     Route: 058
  18. MOUNJARO [Suspect]
     Active Substance: TIRZEPATIDE
     Indication: Blood insulin increased
     Dosage: 12.5 MG, WEEKLY (1/W)
     Route: 058
  19. MOUNJARO [Suspect]
     Active Substance: TIRZEPATIDE
     Indication: Blood insulin increased
     Dosage: 12.5 MG, WEEKLY (1/W)
     Route: 058
  20. MOUNJARO [Suspect]
     Active Substance: TIRZEPATIDE
     Indication: Blood insulin increased
     Dosage: 12.5 MG, WEEKLY (1/W)
     Route: 058
  21. MOUNJARO [Suspect]
     Active Substance: TIRZEPATIDE
     Indication: Type 2 diabetes mellitus
     Dosage: 15 MG, WEEKLY (1/W)
     Route: 058
  22. MOUNJARO [Suspect]
     Active Substance: TIRZEPATIDE
     Indication: Type 2 diabetes mellitus
     Dosage: 15 MG, WEEKLY (1/W)
     Route: 058
  23. MOUNJARO [Suspect]
     Active Substance: TIRZEPATIDE
     Indication: Type 2 diabetes mellitus
     Dosage: 15 MG, WEEKLY (1/W)
     Route: 058
  24. MOUNJARO [Suspect]
     Active Substance: TIRZEPATIDE
     Indication: Type 2 diabetes mellitus
     Dosage: 15 MG, WEEKLY (1/W)
     Route: 058
  25. MOUNJARO [Suspect]
     Active Substance: TIRZEPATIDE
     Indication: Type 2 diabetes mellitus
     Dosage: 15 MG, WEEKLY (1/W)
     Route: 058
  26. MOUNJARO [Suspect]
     Active Substance: TIRZEPATIDE
     Indication: Polycystic ovarian syndrome
  27. MOUNJARO [Suspect]
     Active Substance: TIRZEPATIDE
     Indication: Polycystic ovarian syndrome
  28. MOUNJARO [Suspect]
     Active Substance: TIRZEPATIDE
     Indication: Polycystic ovarian syndrome
  29. MOUNJARO [Suspect]
     Active Substance: TIRZEPATIDE
     Indication: Polycystic ovarian syndrome
  30. MOUNJARO [Suspect]
     Active Substance: TIRZEPATIDE
     Indication: Polycystic ovarian syndrome
  31. MOUNJARO [Suspect]
     Active Substance: TIRZEPATIDE
     Indication: Sjogren^s syndrome
  32. MOUNJARO [Suspect]
     Active Substance: TIRZEPATIDE
     Indication: Sjogren^s syndrome
  33. MOUNJARO [Suspect]
     Active Substance: TIRZEPATIDE
     Indication: Sjogren^s syndrome
  34. MOUNJARO [Suspect]
     Active Substance: TIRZEPATIDE
     Indication: Sjogren^s syndrome
  35. MOUNJARO [Suspect]
     Active Substance: TIRZEPATIDE
     Indication: Sjogren^s syndrome
  36. MOUNJARO [Suspect]
     Active Substance: TIRZEPATIDE
     Indication: Blood insulin increased
  37. MOUNJARO [Suspect]
     Active Substance: TIRZEPATIDE
     Indication: Blood insulin increased
  38. MOUNJARO [Suspect]
     Active Substance: TIRZEPATIDE
     Indication: Blood insulin increased
  39. MOUNJARO [Suspect]
     Active Substance: TIRZEPATIDE
     Indication: Blood insulin increased
  40. MOUNJARO [Suspect]
     Active Substance: TIRZEPATIDE
     Indication: Blood insulin increased
  41. METFORMIN [Concomitant]
     Active Substance: METFORMIN HYDROCHLORIDE
     Indication: Diabetes mellitus
     Dosage: 500 MG, DAILY
     Route: 065
  42. METFORMIN [Concomitant]
     Active Substance: METFORMIN HYDROCHLORIDE
     Indication: Polycystic ovarian syndrome
  43. HYDROXYCHLOROQUINE DIPHOSPHATE [Concomitant]
     Active Substance: HYDROXYCHLOROQUINE DIPHOSPHATE
     Indication: Sjogren^s syndrome
     Dosage: UNK UNK, UNKNOWN
     Route: 065

REACTIONS (3)
  - Weight increased [Unknown]
  - Drug ineffective [Unknown]
  - Accidental overdose [Unknown]

NARRATIVE: CASE EVENT DATE: 20231103
